FAERS Safety Report 5191197-7 (Version None)
Quarter: 2006Q4

REPORT INFORMATION
  Report Type: 
  Country: None (occurrence: None)
  Receive Date: 20061218
  Receipt Date: 20061205
  Transmission Date: 20070319
  Serious: Yes (Death)
  Sender: FDA-Public Use
  Company Number: 2006AL003822

PATIENT
  Age: 41 Year
  Sex: Male

DRUGS (4)
  1. CITALOPRAM HYDROBROMIDE [Suspect]
     Indication: ANXIETY
     Dosage: 10 MG; QD; PO
     Route: 048
  2. PROCHLORPEMAZINE [Concomitant]
  3. PROPRANOLOL [Concomitant]
  4. ZOPICLONE [Concomitant]

REACTIONS (1)
  - COMPLETED SUICIDE [None]
